FAERS Safety Report 10538787 (Version 1)
Quarter: 2014Q4

REPORT INFORMATION
  Report Type: Spontaneous
  Country: EG (occurrence: EG)
  Receive Date: 20141023
  Receipt Date: 20141023
  Transmission Date: 20150529
  Serious: Yes (Other)
  Sender: FDA-Public Use
  Company Number: EG-PFIZER INC-2014287897

PATIENT
  Sex: Male

DRUGS (2)
  1. LYRICA [Suspect]
     Active Substance: PREGABALIN
     Indication: SCIATICA
     Dosage: UNK
  2. SIRDALUD [Suspect]
     Active Substance: TIZANIDINE
     Indication: SCIATICA
     Dosage: UNK

REACTIONS (2)
  - Road traffic accident [Unknown]
  - Somnolence [Unknown]
